FAERS Safety Report 6403372-1 (Version None)
Quarter: 2009Q4

REPORT INFORMATION
  Report Type: 
  Country: None (occurrence: None)
  Receive Date: 20091016
  Receipt Date: 20091005
  Transmission Date: 20100525
  Serious: Yes (Other)
  Sender: FDA-Public Use
  Company Number: US-MYLANLABS-2009S1017426

PATIENT
  Age: 42 Year
  Sex: Female

DRUGS (17)
  1. MILNACIPRAN HYDROCHLORIDE [Interacting]
     Indication: FIBROMYALGIA
     Route: 048
     Dates: start: 20090904, end: 20090904
  2. MILNACIPRAN HYDROCHLORIDE [Interacting]
     Indication: MYOFASCIAL PAIN SYNDROME
     Route: 048
     Dates: start: 20090904, end: 20090904
  3. MILNACIPRAN HYDROCHLORIDE [Interacting]
     Route: 048
     Dates: start: 20090905, end: 20090906
  4. MILNACIPRAN HYDROCHLORIDE [Interacting]
     Route: 048
     Dates: start: 20090905, end: 20090906
  5. MILNACIPRAN HYDROCHLORIDE [Interacting]
     Route: 048
     Dates: start: 20090907, end: 20090910
  6. MILNACIPRAN HYDROCHLORIDE [Interacting]
     Route: 048
     Dates: start: 20090907, end: 20090910
  7. MILNACIPRAN HYDROCHLORIDE [Interacting]
     Route: 048
     Dates: start: 20090911, end: 20090921
  8. MILNACIPRAN HYDROCHLORIDE [Interacting]
     Route: 048
     Dates: start: 20090911, end: 20090921
  9. MILNACIPRAN HYDROCHLORIDE [Interacting]
     Route: 048
     Dates: start: 20090922, end: 20090925
  10. MILNACIPRAN HYDROCHLORIDE [Interacting]
     Route: 048
     Dates: start: 20090922, end: 20090925
  11. MILNACIPRAN HYDROCHLORIDE [Interacting]
     Route: 048
     Dates: start: 20090926, end: 20090927
  12. MILNACIPRAN HYDROCHLORIDE [Interacting]
     Route: 048
     Dates: start: 20090926, end: 20090927
  13. MILNACIPRAN HYDROCHLORIDE [Interacting]
     Route: 048
     Dates: start: 20090928, end: 20090928
  14. TRAMADOL HYDROCHLORIDE [Suspect]
     Indication: ARTHRALGIA
     Route: 048
     Dates: start: 20090501
  15. TRAMADOL HYDROCHLORIDE [Interacting]
     Indication: MYOFASCIAL PAIN SYNDROME
     Route: 048
     Dates: start: 20090501
  16. CLARITIN /00917501/ [Concomitant]
  17. ORAL CONTRACEPTIVE NOS [Concomitant]

REACTIONS (4)
  - DRUG INTERACTION [None]
  - PARAESTHESIA [None]
  - PRURITUS [None]
  - SEROTONIN SYNDROME [None]
